FAERS Safety Report 24694701 (Version 3)
Quarter: 2025Q1

REPORT INFORMATION
  Report Type: Spontaneous
  Country: ES (occurrence: ES)
  Receive Date: 20241204
  Receipt Date: 20250114
  Transmission Date: 20250409
  Serious: Yes (Hospitalization)
  Sender: AMGEN
  Company Number: ES-ROCHE-10000137783

PATIENT
  Age: 47 Year
  Sex: Female
  Weight: 93 kg

DRUGS (11)
  1. TRASTUZUMAB [Suspect]
     Active Substance: TRASTUZUMAB
     Indication: HER2 positive breast cancer
     Dosage: 498 MILLIGRAM, Q3WK (START DATE: 28/JUN/2024)
     Route: 040
     Dates: start: 20240628
  2. EPIRUBICIN HYDROCHLORIDE [Suspect]
     Active Substance: EPIRUBICIN HYDROCHLORIDE
     Indication: HER2 positive breast cancer
     Dosage: 189 MILLIGRAM, Q3WK (189 MG, EVERY 3 WEEKS)
     Route: 040
     Dates: start: 20240628
  3. CYCLOPHOSPHAMIDE [Suspect]
     Active Substance: CYCLOPHOSPHAMIDE
     Indication: HER2 positive breast cancer
     Dosage: 945 MILLIGRAM, Q3WK (START DATE: 28/JUN/2024)
     Route: 040
     Dates: start: 20240628
  4. APIXABAN [Concomitant]
     Active Substance: APIXABAN
     Route: 065
     Dates: start: 20220322
  5. BISOPROLOL [Concomitant]
     Active Substance: BISOPROLOL
     Route: 065
  6. FUROSEMIDE [Concomitant]
     Active Substance: FUROSEMIDE
     Route: 065
  7. DAPAGLIFLOZIN [Concomitant]
     Active Substance: DAPAGLIFLOZIN
     Route: 065
     Dates: start: 20220315
  8. SACUBITRILO [Concomitant]
     Route: 065
  9. VALSARTAN [Concomitant]
     Active Substance: VALSARTAN
     Route: 065
  10. OMEPRAZOL A [Concomitant]
  11. IRON [Concomitant]
     Active Substance: IRON
     Route: 065

REACTIONS (3)
  - Cardiac failure [Recovered/Resolved with Sequelae]
  - Mitral valve incompetence [Recovered/Resolved with Sequelae]
  - Cardiac failure [Recovered/Resolved with Sequelae]

NARRATIVE: CASE EVENT DATE: 20240622
